FAERS Safety Report 18832038 (Version 1)
Quarter: 2021Q1

REPORT INFORMATION
  Report Type: Spontaneous
  Country: FR (occurrence: FR)
  Receive Date: 20210203
  Receipt Date: 20210203
  Transmission Date: 20210419
  Serious: Yes (Hospitalization)
  Sender: FDA-Public Use
  Company Number: NVSC2021FR020648

PATIENT
  Age: 46 Year
  Sex: Male
  Weight: 107 kg

DRUGS (1)
  1. ISOPTO PILOCARPINE [Suspect]
     Active Substance: PILOCARPINE HYDROCHLORIDE
     Indication: PIGMENTARY GLAUCOMA
     Dosage: 2 DRP, QD (1/12 MILLILITRE)
     Route: 047
     Dates: start: 20201118, end: 20201123

REACTIONS (3)
  - Retinal detachment [Recovered/Resolved with Sequelae]
  - Eye pain [Recovered/Resolved]
  - Vision blurred [Recovered/Resolved]

NARRATIVE: CASE EVENT DATE: 20201118
